FAERS Safety Report 23284218 (Version 1)
Quarter: 2023Q4

REPORT INFORMATION
  Report Type: Spontaneous
  Country: US (occurrence: US)
  Receive Date: 20231211
  Receipt Date: 20231211
  Transmission Date: 20240110
  Serious: No
  Sender: FDA-Public Use
  Company Number: US-JUBILANT PHARMA LTD-2023US000940

PATIENT

DRUGS (3)
  1. DRAXIMAGE MAA [Suspect]
     Active Substance: TECHNETIUM TC-99M ALBUMIN AGGREGATED
     Indication: Pulmonary imaging procedure
     Dosage: 10.05 MCI, SINGLE DOSE
     Route: 042
     Dates: start: 20230805, end: 20230805
  2. DRAXIMAGE MAA [Suspect]
     Active Substance: TECHNETIUM TC-99M ALBUMIN AGGREGATED
     Dosage: 3 MCI, SINGLE DOSE
     Route: 042
     Dates: start: 20230805, end: 20230805
  3. DRAXIMAGE MAA [Suspect]
     Active Substance: TECHNETIUM TC-99M ALBUMIN AGGREGATED
     Dosage: UNK, SINGLE DOSE
     Route: 042
     Dates: start: 20230805, end: 20230805

REACTIONS (1)
  - Drug ineffective [Unknown]
